FAERS Safety Report 14969805 (Version 1)
Quarter: 2018Q2

REPORT INFORMATION
  Report Type: Spontaneous
  Country: US (occurrence: US)
  Receive Date: 20180604
  Receipt Date: 20180604
  Transmission Date: 20180711
  Serious: No
  Sender: FDA-Public Use
  Company Number: US-MYLANLABS-2018M1032945

PATIENT
  Sex: Male
  Weight: 73.48 kg

DRUGS (2)
  1. FENTANYL TRANSDERMAL SYSTEM [Suspect]
     Active Substance: FENTANYL
     Indication: PAIN
     Dosage: UNK
     Route: 062
  2. OXYCODONE [Concomitant]
     Active Substance: OXYCODONE
     Indication: PRODUCT USED FOR UNKNOWN INDICATION
     Dosage: UNK

REACTIONS (6)
  - Wrong technique in product usage process [Unknown]
  - Drug effect decreased [Recovering/Resolving]
  - Product adhesion issue [Unknown]
  - Product quality issue [Unknown]
  - Feeling abnormal [Recovering/Resolving]
  - Chills [Recovering/Resolving]
